FAERS Safety Report 10713750 (Version 4)
Quarter: 2021Q4

REPORT INFORMATION
  Report Type: Spontaneous
  Country: US (occurrence: US)
  Receive Date: 20150115
  Receipt Date: 20211019
  Transmission Date: 20220303
  Serious: Yes (Other)
  Sender: FDA-Public Use
  Company Number: US-PFIZER INC-2015011167

PATIENT
  Age: 62 Year
  Sex: Male
  Weight: 113 kg

DRUGS (2)
  1. RAPAMUNE [Suspect]
     Active Substance: SIROLIMUS
     Indication: Immunosuppression
     Dosage: 0.5 MG, 1X/DAY (QD) (0.5 MG OD)
     Route: 048
  2. RAPAMUNE [Suspect]
     Active Substance: SIROLIMUS
     Indication: Liver transplant

REACTIONS (3)
  - Arthropathy [Unknown]
  - Blood cholesterol increased [Unknown]
  - Product use in unapproved indication [Unknown]
